FAERS Safety Report 14638974 (Version 1)
Quarter: 2018Q1

REPORT INFORMATION
  Report Type: Spontaneous
  Country: ME (occurrence: ME)
  Receive Date: 20180315
  Receipt Date: 20180315
  Transmission Date: 20180509
  Serious: Yes (Other)
  Sender: FDA-Public Use
  Company Number: ME-RICON PHARMA, LLC-RIC201803-000204

PATIENT
  Age: 56 Year
  Sex: Female

DRUGS (1)
  1. DICLOFENAC [Suspect]
     Active Substance: DICLOFENAC
     Indication: BACK PAIN

REACTIONS (1)
  - Gastrointestinal disorder [Unknown]
